FAERS Safety Report 16015888 (Version 1)
Quarter: 2019Q1

REPORT INFORMATION
  Report Type: Spontaneous
  Country: US (occurrence: US)
  Receive Date: 20190228
  Receipt Date: 20190228
  Transmission Date: 20190418
  Serious: Yes (Hospitalization)
  Sender: FDA-Public Use
  Company Number: US-SA-2019SA051345

PATIENT
  Age: 65 Year
  Sex: Female

DRUGS (10)
  1. METOPROLOL SUCCINATE. [Suspect]
     Active Substance: METOPROLOL SUCCINATE
     Dosage: 50 MG, QD DOSE INCREASED
  2. SUCCINYLCHOLINE [SUXAMETHONIUM] [Suspect]
     Active Substance: SUCCINYLCHOLINE
     Indication: ELECTROCONVULSIVE THERAPY
  3. ETOMIDATE. [Suspect]
     Active Substance: ETOMIDATE
     Indication: ELECTROCONVULSIVE THERAPY
  4. METOPROLOL TARTRATE. [Suspect]
     Active Substance: METOPROLOL TARTRATE
     Indication: ELECTROCONVULSIVE THERAPY
  5. METOPROLOL SUCCINATE. [Suspect]
     Active Substance: METOPROLOL SUCCINATE
     Indication: ELECTROCONVULSIVE THERAPY
     Dosage: 25 MG, QD
  6. ONDANSETRON [Suspect]
     Active Substance: ONDANSETRON
     Indication: ELECTROCONVULSIVE THERAPY
  7. LIDOCAINE. [Suspect]
     Active Substance: LIDOCAINE
     Indication: ELECTROCONVULSIVE THERAPY
  8. KETOROLAC [Suspect]
     Active Substance: KETOROLAC\KETOROLAC TROMETHAMINE
     Indication: ELECTROCONVULSIVE THERAPY
  9. DEXAMETHASONE. [Suspect]
     Active Substance: DEXAMETHASONE
     Indication: ELECTROCONVULSIVE THERAPY
  10. ESMOLOL [Suspect]
     Active Substance: ESMOLOL HYDROCHLORIDE
     Indication: ELECTROCONVULSIVE THERAPY

REACTIONS (2)
  - Depression [Recovered/Resolved]
  - Stress cardiomyopathy [Recovered/Resolved]
